FAERS Safety Report 6006380-8 (Version None)
Quarter: 2008Q4

REPORT INFORMATION
  Report Type: 
  Country: None (occurrence: None)
  Receive Date: 20081217
  Receipt Date: 20081103
  Transmission Date: 20090506
  Serious: No
  Sender: FDA-Public Use
  Company Number: US-BAYER-200814280BCC

PATIENT
  Age: 62 Year
  Sex: Male
  Weight: 93 kg

DRUGS (4)
  1. ALEVE (CAPLET) [Suspect]
     Indication: ANALGESIA
     Dosage: UNIT DOSE: 220 MG
  2. ALEVE (CAPLET) [Suspect]
  3. LASIX [Concomitant]
  4. HIGH BLOOD PRESSURE MEDICATION [Concomitant]

REACTIONS (2)
  - BLOOD PRESSURE INCREASED [None]
  - BLOOD SODIUM DECREASED [None]
